FAERS Safety Report 25024264 (Version 1)
Quarter: 2025Q1

REPORT INFORMATION
  Report Type: Report from Study
  Country: ES (occurrence: ES)
  Receive Date: 20250228
  Receipt Date: 20250228
  Transmission Date: 20250408
  Serious: Yes (Hospitalization)
  Sender: ULTRAGENYX PHARMACEUTICAL
  Company Number: ES-ULTRAGENYX PHARMACEUTICAL INC.-ES-UGX-25-00342

PATIENT
  Age: 13 Year
  Sex: Female
  Weight: 39.2 kg

DRUGS (5)
  1. MEPSEVII [Suspect]
     Active Substance: VESTRONIDASE ALFA-VJBK
     Indication: Mucopolysaccharidosis VII
     Dosage: 150 MILLIGRAM, QOW, EVERY 15 DAYS (4MG/KG APPROX)
     Route: 042
     Dates: start: 20161116
  2. MEPSEVII [Suspect]
     Active Substance: VESTRONIDASE ALFA-VJBK
     Dosage: 150 MILLIGRAM, QOW, EVERY 15 DAYS (4MG/KG APPROX)
     Route: 042
     Dates: start: 20250204, end: 20250204
  3. ACETAMINOPHEN [Concomitant]
     Active Substance: ACETAMINOPHEN
     Indication: Premedication
     Route: 042
     Dates: start: 20250204, end: 20250204
  4. CAPTOPRIL [Concomitant]
     Active Substance: CAPTOPRIL
     Indication: Cardiac disorder
     Dosage: 2.5 MILLIGRAM, Q12H
     Route: 048
     Dates: start: 2023
  5. POLARAMINE [Concomitant]
     Active Substance: DEXCHLORPHENIRAMINE MALEATE
     Indication: Premedication
     Route: 042
     Dates: start: 20250204, end: 20250204

REACTIONS (1)
  - Spinal cord compression [Recovering/Resolving]

NARRATIVE: CASE EVENT DATE: 20250213
